FAERS Safety Report 5804932-9 (Version None)
Quarter: 2008Q3

REPORT INFORMATION
  Report Type: 
  Country: None (occurrence: None)
  Receive Date: 20080709
  Receipt Date: 20080630
  Transmission Date: 20090109
  Serious: Yes (Hospitalization, Other)
  Sender: FDA-Public Use
  Company Number: PHEH2007US04066

PATIENT
  Sex: Female
  Weight: 77.097 kg

DRUGS (46)
  1. ESTRADERM [Suspect]
     Indication: MENOPAUSE
     Dosage: 0.05MG UNK
     Route: 061
     Dates: start: 19930720
  2. PREMPRO [Suspect]
     Dosage: 0.625MG/2.5MG
     Dates: start: 19980629, end: 20000101
  3. PREMPRO [Suspect]
     Dosage: EZ DIAL
     Dates: start: 20000103, end: 20000418
  4. PREMPRO [Suspect]
     Dosage: .625MG/2.5MG
     Dates: start: 20000401, end: 20010101
  5. PREMPRO [Suspect]
     Dosage: .625MG/5MG
     Dates: start: 20010201, end: 20020412
  6. ESTROGENS CONJUGATED [Suspect]
     Dosage: 0.625MG
     Route: 048
     Dates: start: 19950807, end: 19950811
  7. PREMARIN [Suspect]
     Dosage: 0.3MG QD
  8. PROVERA [Suspect]
     Indication: MENOPAUSE
     Dosage: 10MG
  9. CARTIA /USA/ [Concomitant]
     Dosage: 240MG UNK
  10. BUSPAR [Concomitant]
     Dosage: 15MG
  11. BUSPAR [Concomitant]
     Dosage: 10MG TID
  12. NORTRIPTYLINE HCL [Concomitant]
     Dosage: 50MG
  13. PROZAC [Concomitant]
     Dosage: 10MG
  14. CARDIZEM [Concomitant]
     Dosage: 240MG
  15. PROMETHAZINE [Concomitant]
     Dosage: 25MG
  16. COZAAR [Concomitant]
     Dosage: 50MG
  17. RITALIN [Concomitant]
  18. ZOLOFT [Concomitant]
  19. VALIUM [Concomitant]
     Dosage: 10MG
  20. MIDRIN [Concomitant]
  21. SYNTHROID [Concomitant]
     Indication: HYPOTHYROIDISM
     Dosage: .05MG
  22. NORFLEX [Concomitant]
  23. DESYREL [Concomitant]
  24. KLONOPIN [Concomitant]
     Dosage: 1MG
  25. COMPAZINE [Concomitant]
  26. TYLENOL W/ CODEINE NO. 3 [Concomitant]
  27. INDOCIN [Concomitant]
  28. LOPRESSOR [Concomitant]
  29. PAMELOR [Concomitant]
  30. PROTONIX [Concomitant]
  31. PERCOCET [Concomitant]
  32. SKELAXIN [Concomitant]
  33. TAMOXIFEN CITRATE [Concomitant]
     Dosage: 10MG BID
  34. VOLTAREN [Concomitant]
  35. SOMA [Concomitant]
     Dosage: 350MG
  36. FIORICET [Concomitant]
  37. CELEBREX [Concomitant]
     Dosage: 100MG
  38. DARVOCET-N 100 [Concomitant]
     Dosage: 100MG
  39. FIORICET W/ CODEINE [Concomitant]
  40. LEVOTHYROXINE SODIUM [Concomitant]
     Dosage: 50MCG
  41. ADALAT - SLOW RELEASE [Concomitant]
     Dosage: 60MG
  42. VICODIN [Concomitant]
  43. ULTRAM [Concomitant]
  44. MOTRIN [Concomitant]
  45. CALAN [Concomitant]
  46. ASPIRIN [Concomitant]

REACTIONS (41)
  - ARTERIOSCLEROSIS [None]
  - ARTHRALGIA [None]
  - ARTHRITIS [None]
  - ASTHENIA [None]
  - BACK PAIN [None]
  - BREAST CANCER [None]
  - BREAST OPERATION [None]
  - BREAST PAIN [None]
  - CEREBRAL INFARCTION [None]
  - CERVICOBRACHIAL SYNDROME [None]
  - CHRONIC FATIGUE SYNDROME [None]
  - DEPRESSION [None]
  - DIZZINESS [None]
  - DRUG ABUSE [None]
  - DYSPNOEA [None]
  - EPIGASTRIC DISCOMFORT [None]
  - FALL [None]
  - FAT NECROSIS [None]
  - FIBROMYALGIA [None]
  - GASTROOESOPHAGEAL REFLUX DISEASE [None]
  - HEADACHE [None]
  - HOT FLUSH [None]
  - HYPERTENSION [None]
  - INTERVERTEBRAL DISC DISORDER [None]
  - LOSS OF CONSCIOUSNESS [None]
  - MALIGNANT BREAST LUMP REMOVAL [None]
  - MIGRAINE [None]
  - MUSCLE SPASMS [None]
  - MUSCULOSKELETAL STIFFNESS [None]
  - OSTEOARTHRITIS [None]
  - OSTEOPENIA [None]
  - PAIN [None]
  - PAIN IN EXTREMITY [None]
  - PALPITATIONS [None]
  - RADICULITIS BRACHIAL [None]
  - RHEUMATOID ARTHRITIS [None]
  - ROAD TRAFFIC ACCIDENT [None]
  - SCIATICA [None]
  - SPINAL OSTEOARTHRITIS [None]
  - SUICIDAL IDEATION [None]
  - VASCULAR CALCIFICATION [None]
